FAERS Safety Report 10218825 (Version 1)
Quarter: 2014Q2

REPORT INFORMATION
  Report Type: Spontaneous
  Country: US (occurrence: None)
  Receive Date: 20140604
  Receipt Date: 20140604
  Transmission Date: 20141212
  Serious: No
  Sender: FDA-Public Use
  Company Number: None

PATIENT
  Age: 43 Year
  Sex: Male
  Weight: 113.4 kg

DRUGS (1)
  1. METHYLPHENIDATE 36 MG MALINCKRODT [Suspect]
     Indication: ATTENTION DEFICIT/HYPERACTIVITY DISORDER
     Dosage: 2  ONCE DAILY TAKEN BY MOUTH
     Route: 048
     Dates: start: 20140415, end: 20140602

REACTIONS (4)
  - Therapeutic response decreased [None]
  - Impaired work ability [None]
  - Activities of daily living impaired [None]
  - Disease recurrence [None]
